FAERS Safety Report 7170113-2 (Version None)
Quarter: 2010Q4

REPORT INFORMATION
  Report Type: 
  Country: None (occurrence: None)
  Receive Date: 20101217
  Receipt Date: 20101206
  Transmission Date: 20110411
  Serious: Yes (Hospitalization)
  Sender: FDA-Public Use
  Company Number: US-JNJFOC-20101202385

PATIENT
  Sex: Male
  Weight: 47.8 kg

DRUGS (9)
  1. REMICADE [Suspect]
     Indication: CROHN'S DISEASE
     Route: 042
  2. HUMIRA [Concomitant]
  3. OMEPRAZOLE [Concomitant]
  4. RIFAXIMIN [Concomitant]
  5. MORPHINE [Concomitant]
  6. CHLORHEXIDINE GLUCONATE [Concomitant]
  7. MIRALAX [Concomitant]
  8. BENADRYL [Concomitant]
  9. ATIVAN [Concomitant]

REACTIONS (1)
  - SEPTIC SHOCK [None]
